FAERS Safety Report 10874387 (Version 1)
Quarter: 2015Q1

REPORT INFORMATION
  Report Type: Spontaneous
  Country: US (occurrence: US)
  Receive Date: 20150227
  Receipt Date: 20150227
  Transmission Date: 20150721
  Serious: Yes (Other)
  Sender: FDA-Public Use
  Company Number: US-BAXTER-2015BAX010306

PATIENT
  Age: 32 Year
  Sex: Female
  Weight: 111 kg

DRUGS (42)
  1. 0.9% SODIUM CHLORIDE INJECTION [Suspect]
     Active Substance: SODIUM CHLORIDE
     Dosage: WITH 1 MG CEFTAROLINE FOSAMIL AT A CONCENTRATION OF 0.0385 MG/ML
     Route: 042
  2. 0.9% SODIUM CHLORIDE INJECTION [Suspect]
     Active Substance: SODIUM CHLORIDE
     Dosage: WITH 30 MG CEFTAROLINE FOSAMIL AT A CONCENTRATION OF 1.1538 MG/ML
     Route: 042
  3. CEFTAROLINE FOSAMIL [Suspect]
     Active Substance: CEFTAROLINE FOSAMIL
     Dosage: 1 ML OF 0.1 MG/ML CEFTAROLINE FOSAMIL IN 25 ML OF 0.9% NACL
     Route: 042
  4. TIGECYCLINE [Concomitant]
     Active Substance: TIGECYCLINE
     Indication: OSTEOMYELITIS
     Route: 065
  5. CEFTAROLINE FOSAMIL [Suspect]
     Active Substance: CEFTAROLINE FOSAMIL
     Dosage: 1.0 ML OF 30 MG/ML CEFTAROLINE FOSAMIL IN 25 ML OF 0.9% NACL
     Route: 042
  6. CEFTAROLINE FOSAMIL [Suspect]
     Active Substance: CEFTAROLINE FOSAMIL
     Dosage: 2.5 ML OF 30 MG/ML CEFTAROLINE FOSAMIL IN 25 ML OF 0.9% NACL
     Route: 042
  7. TOBRAMYCIN. [Concomitant]
     Active Substance: TOBRAMYCIN
     Indication: CELLULITIS STAPHYLOCOCCAL
     Route: 065
  8. LINEZOLID. [Concomitant]
     Active Substance: LINEZOLID
     Indication: PRODUCT USED FOR UNKNOWN INDICATION
     Route: 065
  9. AZTREONAM. [Concomitant]
     Active Substance: AZTREONAM
     Indication: PRODUCT USED FOR UNKNOWN INDICATION
     Route: 065
  10. 0.9% SODIUM CHLORIDE INJECTION [Suspect]
     Active Substance: SODIUM CHLORIDE
     Dosage: WITH 0.1 MG CEFTAROLINE FOSAMIL AT A CONCENTRATION OF 0.0038 MG/ML
     Route: 042
  11. 0.9% SODIUM CHLORIDE INJECTION [Suspect]
     Active Substance: SODIUM CHLORIDE
     Dosage: WITH 150 MG CEFTAROLINE FOSAMIL AT A CONCENTRATION OF 5 MG/ML
     Route: 042
  12. 0.9% SODIUM CHLORIDE INJECTION [Suspect]
     Active Substance: SODIUM CHLORIDE
     Dosage: WITH 300 MG CEFTAROLINE FOSAMIL AT A CONCENTRATION OF 5 MG/ML
     Route: 042
  13. CEFTAROLINE FOSAMIL [Suspect]
     Active Substance: CEFTAROLINE FOSAMIL
     Indication: CELLULITIS STAPHYLOCOCCAL
     Dosage: 0.1 ML OF 1 MG/ML CEFTAROLINE FOSAMIL IN 25 ML OF 0.9% NACL
     Route: 042
  14. CEFTAROLINE FOSAMIL [Suspect]
     Active Substance: CEFTAROLINE FOSAMIL
     Dosage: 5.0 ML OF 1 MG/ML CEFTAROLINE FOSAMIL IN 25 ML OF 0.9% NACL
     Route: 042
  15. VANCOMYCIN [Concomitant]
     Active Substance: VANCOMYCIN
     Indication: OSTEOMYELITIS
  16. 0.9% SODIUM CHLORIDE INJECTION [Suspect]
     Active Substance: SODIUM CHLORIDE
     Dosage: WITH 0.03 MG CEFTAROLINE FOSAMIL AT A CONCENTRATION OF 0.0012 MG/ML
     Route: 042
  17. 0.9% SODIUM CHLORIDE INJECTION [Suspect]
     Active Substance: SODIUM CHLORIDE
     Dosage: WITH 0.05 MG CEFTAROLINE FOSAMIL AT A CONCENTRATION OF 0.0020 MG/ML
     Route: 042
  18. CEFTAROLINE FOSAMIL [Suspect]
     Active Substance: CEFTAROLINE FOSAMIL
     Dosage: 0.5 ML OF 0.1 MG/ML CEFTAROLINE FOSAMIL IN 25 ML OF 0.9% NACL
     Route: 042
  19. CEFTAROLINE FOSAMIL [Suspect]
     Active Substance: CEFTAROLINE FOSAMIL
     Dosage: 2.5 ML OF 0.1 MG/ML CEFTAROLINE FOSAMIL IN 25 ML OF 0.9% NACL
     Route: 042
  20. CEFTAROLINE FOSAMIL [Suspect]
     Active Substance: CEFTAROLINE FOSAMIL
     Dosage: 5.0 ML OF 0.1 MG/ML CEFTAROLINE FOSAMIL IN 25 ML OF 0.9% NACL
     Route: 042
  21. TOBRAMYCIN. [Concomitant]
     Active Substance: TOBRAMYCIN
     Indication: OSTEOMYELITIS
  22. PENICILLIN [Concomitant]
     Active Substance: PENICILLIN
     Indication: PRODUCT USED FOR UNKNOWN INDICATION
     Route: 065
  23. SULFAMETHOXAZOLE AND TRIMETHOPRIM [Concomitant]
     Active Substance: SULFAMETHOXAZOLE\TRIMETHOPRIM
     Indication: CELLULITIS STAPHYLOCOCCAL
     Dosage: SULFAMETHOXAZOLE (800 MG) AND TRIMETHOPRIM (160 MG)
     Route: 048
  24. 0.9% SODIUM CHLORIDE INJECTION [Suspect]
     Active Substance: SODIUM CHLORIDE
     Dosage: WITH 0.5 MG CEFTAROLINE FOSAMIL AT A CONCENTRATION OF 0.0167 MG/ML
     Route: 042
  25. 0.9% SODIUM CHLORIDE INJECTION [Suspect]
     Active Substance: SODIUM CHLORIDE
     Dosage: WITH 3 MG CEFTAROLINE FOSAMIL AT A CONCENTRATION OF 0.1071 MG/ML
     Route: 042
  26. 0.9% SODIUM CHLORIDE INJECTION [Suspect]
     Active Substance: SODIUM CHLORIDE
     Dosage: WITH 5 MG CEFTAROLINE FOSAMIL AT A CONCENTRATION OF 0.1667 MG/ML
     Route: 042
  27. 0.9% SODIUM CHLORIDE INJECTION [Suspect]
     Active Substance: SODIUM CHLORIDE
     Dosage: WITH 75 MG CEFTAROLINE FOSAMIL AT A CONCENTRATION OF 2.7273 MG/ML
     Route: 042
  28. CEFTAROLINE FOSAMIL [Suspect]
     Active Substance: CEFTAROLINE FOSAMIL
     Dosage: 1.0 ML OF 1 MG/ML CEFTAROLINE FOSAMIL IN 25 ML OF 0.9% NACL
     Route: 042
  29. CEFTAROLINE FOSAMIL [Suspect]
     Active Substance: CEFTAROLINE FOSAMIL
     Dosage: 5.0 ML OF 30 MG/ML CEFTAROLINE FOSAMIL IN 25 ML OF 0.9% NACL
     Route: 042
  30. GENTAMICIN. [Concomitant]
     Active Substance: GENTAMICIN
     Indication: PRODUCT USED FOR UNKNOWN INDICATION
     Route: 065
  31. 0.9% SODIUM CHLORIDE INJECTION [Suspect]
     Active Substance: SODIUM CHLORIDE
     Indication: MEDICATION DILUTION
     Dosage: WITH 0.01 MG CEFTAROLINE FOSAMIL AT A CONCENTRATION OF 0.0004 MG/ML
     Route: 042
  32. 0.9% SODIUM CHLORIDE INJECTION [Suspect]
     Active Substance: SODIUM CHLORIDE
     Dosage: WITH 0.25 MG CEFTAROLINE FOSAMIL AT A CONCENTRATION OF 0.0091 MG/ML
     Route: 042
  33. CEFTAROLINE FOSAMIL [Suspect]
     Active Substance: CEFTAROLINE FOSAMIL
     Indication: OSTEOMYELITIS
     Dosage: 0.3ML OF 0.1 MG/ML CEFTAROLINE FOSAMIL IN 25 ML OF 0.9% NACL
     Route: 042
  34. CEFTAROLINE FOSAMIL [Suspect]
     Active Substance: CEFTAROLINE FOSAMIL
     Dosage: 3.0 ML OF 1 MG/ML CEFTAROLINE FOSAMIL IN 25 ML OF 0.9% NACL
     Route: 042
  35. CEFTAROLINE FOSAMIL [Suspect]
     Active Substance: CEFTAROLINE FOSAMIL
     Route: 042
  36. CIPROFLOXACIN. [Concomitant]
     Active Substance: CIPROFLOXACIN
     Indication: PRODUCT USED FOR UNKNOWN INDICATION
     Route: 065
  37. 0.9% SODIUM CHLORIDE INJECTION [Suspect]
     Active Substance: SODIUM CHLORIDE
     Dosage: WITH 10 MG CEFTAROLINE FOSAMIL AT A CONCENTRATION OF 0.2857 MG/ML
     Route: 042
  38. CEFTAROLINE FOSAMIL [Suspect]
     Active Substance: CEFTAROLINE FOSAMIL
     Dosage: 10.0 ML OF 1 MG/ML CEFTAROLINE FOSAMIL IN 25 ML OF 0.9% NACL
     Route: 042
  39. CEFTAROLINE FOSAMIL [Suspect]
     Active Substance: CEFTAROLINE FOSAMIL
     Dosage: 5.0 ML OF 30 MG/ML CEFTAROLINE FOSAMIL IN 25 ML OF 0.9% NACL
     Route: 042
  40. DAPTOMYCIN. [Concomitant]
     Active Substance: DAPTOMYCIN
     Indication: PRODUCT USED FOR UNKNOWN INDICATION
     Route: 065
  41. ERTAPENEM [Concomitant]
     Active Substance: ERTAPENEM
     Indication: PRODUCT USED FOR UNKNOWN INDICATION
     Route: 065
  42. VANCOMYCIN [Concomitant]
     Active Substance: VANCOMYCIN
     Indication: CELLULITIS STAPHYLOCOCCAL
     Route: 042

REACTIONS (3)
  - Nausea [Unknown]
  - Diarrhoea [Unknown]
  - Vomiting [Unknown]
